FAERS Safety Report 22523525 (Version 1)
Quarter: 2023Q2

REPORT INFORMATION
  Report Type: Report from Study
  Country: US (occurrence: US)
  Receive Date: 20230606
  Receipt Date: 20230606
  Transmission Date: 20230722
  Serious: Yes (Other)
  Sender: FDA-Public Use
  Company Number: US-ABBVIE-5276978

PATIENT
  Sex: Male

DRUGS (1)
  1. IMBRUVICA [Suspect]
     Active Substance: IBRUTINIB
     Indication: Chronic lymphocytic leukaemia
     Route: 048
     Dates: start: 20180601

REACTIONS (5)
  - Blindness [Unknown]
  - Globulins decreased [Unknown]
  - Hypertension [Recovering/Resolving]
  - Gastric disorder [Recovering/Resolving]
  - Fatigue [Unknown]
